FAERS Safety Report 9937129 (Version 1)
Quarter: 2014Q1

REPORT INFORMATION
  Report Type: Spontaneous
  Country: FR (occurrence: FR)
  Receive Date: 20140301
  Receipt Date: 20140301
  Transmission Date: 20141002
  Serious: Yes (Other)
  Sender: FDA-Public Use
  Company Number: FR-ROCHE-1358011

PATIENT
  Age: 55 Year
  Sex: Male

DRUGS (3)
  1. MABTHERA [Suspect]
     Indication: RHEUMATOID ARTHRITIS
     Dosage: 5TH CYCLE OF MABTHERA: 23/JAN/2013
     Route: 042
     Dates: start: 2011, end: 20130123
  2. DAFALGAN [Concomitant]
     Dosage: AS NEEDED
     Route: 065
  3. CELEBREX [Concomitant]
     Dosage: AS NEEDED
     Route: 065

REACTIONS (1)
  - Sarcoidosis [Unknown]
